FAERS Safety Report 4382716-9 (Version None)
Quarter: 2004Q2

REPORT INFORMATION
  Report Type: 
  Country: None (occurrence: None)
  Receive Date: 20040616
  Receipt Date: 20040610
  Transmission Date: 20050107
  Serious: Yes (Death, Life-Threatening, Hospitalization)
  Sender: FDA-Public Use
  Company Number: HQ2719214JUN2002

PATIENT
  Age: 69 Year
  Sex: Female
  Weight: 48.5 kg

DRUGS (7)
  1. MYLOTARG [Suspect]
     Indication: ACUTE MYELOID LEUKAEMIA
     Dosage: 9 MG/M^2 1X PER 1 DAY , INTRAVENOUS
     Route: 042
     Dates: start: 20020430, end: 20020430
  2. MULTIVITAMINS, PLAIN [Concomitant]
  3. SALAGEN [Concomitant]
  4. PROTONIX [Concomitant]
  5. SYNTHROID [Concomitant]
  6. VIOXX [Concomitant]
  7. LANOXIN [Concomitant]

REACTIONS (14)
  - BLOOD ALBUMIN DECREASED [None]
  - CONFUSIONAL STATE [None]
  - CULTURE URINE POSITIVE [None]
  - ENTEROCOCCAL INFECTION [None]
  - HEPATIC CIRRHOSIS [None]
  - HEPATIC FAILURE [None]
  - HEPATOMEGALY [None]
  - NAUSEA [None]
  - NEUTROPENIA [None]
  - OEDEMA [None]
  - ORTHOSTATIC HYPOTENSION [None]
  - PLEURAL EFFUSION [None]
  - PYREXIA [None]
  - WEIGHT INCREASED [None]
